FAERS Safety Report 9624294 (Version 2)
Quarter: 2013Q4

REPORT INFORMATION
  Report Type: Report from Study
  Country: KR (occurrence: KR)
  Receive Date: 20131015
  Receipt Date: 20131015
  Transmission Date: 20140711
  Serious: Yes (Other)
  Sender: FDA-Public Use
  Company Number: KR-ROCHE-1277413

PATIENT
  Age: 50 Year
  Sex: Female

DRUGS (2)
  1. CAPECITABINE [Suspect]
     Indication: GASTRIC CANCER
     Dosage: DAYS 1-14 FOLLOWED BY A 7-DAY REST PERIOD.
     Route: 065
  2. EVEROLIMUS [Suspect]
     Indication: GASTRIC CANCER
     Dosage: DAYS 1-21 WITHOUT REST. SHE RECEIVED A TOTAL OF 6 CYCLES,
     Route: 065
     Dates: start: 20100302, end: 20100706

REACTIONS (1)
  - Mucosal inflammation [Unknown]
